FAERS Safety Report 5642724-4 (Version None)
Quarter: 2008Q1

REPORT INFORMATION
  Report Type: 
  Country: None (occurrence: None)
  Receive Date: 20080227
  Receipt Date: 20080227
  Transmission Date: 20080703
  Serious: Yes (Hospitalization)
  Sender: FDA-Public Use
  Company Number: None

PATIENT
  Sex: Male
  Weight: 95.2554 kg

DRUGS (4)
  1. NORCO [Suspect]
     Indication: PAIN
     Dosage: PO
     Route: 048
     Dates: start: 20070608
  2. CIPRO [Concomitant]
  3. FLAGYL [Concomitant]
  4. DONNATAL [Concomitant]

REACTIONS (3)
  - ERYTHEMA [None]
  - LIP SWELLING [None]
  - PRURITUS [None]
